FAERS Safety Report 19381848 (Version 1)
Quarter: 2021Q2

REPORT INFORMATION
  Report Type: Spontaneous
  Country: US (occurrence: US)
  Receive Date: 20210606
  Receipt Date: 20210606
  Transmission Date: 20210717
  Serious: Yes (Disabling)
  Sender: FDA-Public Use
  Company Number: None

PATIENT
  Age: 68 Year
  Sex: Female
  Weight: 67.5 kg

DRUGS (9)
  1. PICARDIN INSECT REPELLENT LOTION [Suspect]
     Active Substance: ICARIDIN
     Indication: PROPHYLAXIS
     Route: 061
     Dates: start: 20210524, end: 20210605
  2. MULTI VITAMIN [Concomitant]
     Active Substance: VITAMINS
  3. ASHWAGANDA [Concomitant]
     Active Substance: HERBALS
  4. NP THYROID [Concomitant]
     Active Substance: LEVOTHYROXINE\LIOTHYRONINE
  5. CALCIUM [Concomitant]
     Active Substance: CALCIUM
  6. BIOSIL [Concomitant]
  7. OMEGA3 [Concomitant]
  8. LAMOTRIGINE. [Concomitant]
     Active Substance: LAMOTRIGINE
  9. TRIPHALA [Concomitant]

REACTIONS (1)
  - Vertigo [None]

NARRATIVE: CASE EVENT DATE: 20210605
